FAERS Safety Report 20185605 (Version 1)
Quarter: 2021Q4

REPORT INFORMATION
  Report Type: Spontaneous
  Country: JP (occurrence: JP)
  Receive Date: 20211215
  Receipt Date: 20211215
  Transmission Date: 20220303
  Serious: Yes (Hospitalization, Other)
  Sender: FDA-Public Use
  Company Number: JP-TAKEDA-2021TJP129546

PATIENT
  Age: 5 Decade
  Sex: Female

DRUGS (1)
  1. AGRYLIN [Suspect]
     Active Substance: ANAGRELIDE HYDROCHLORIDE
     Indication: Essential thrombocythaemia
     Dosage: 2 MILLIGRAM, BID
     Route: 048

REACTIONS (1)
  - Arteriospasm coronary [Not Recovered/Not Resolved]

NARRATIVE: CASE EVENT DATE: 20211101
